FAERS Safety Report 11939296 (Version 1)
Quarter: 2016Q1

REPORT INFORMATION
  Report Type: Report from Study
  Country: US (occurrence: US)
  Receive Date: 20160122
  Receipt Date: 20160122
  Transmission Date: 20160526
  Serious: Yes (Death, Hospitalization)
  Sender: FDA-Public Use
  Company Number: US-JNJFOC-20151212674

PATIENT
  Age: 71 Year
  Sex: Male

DRUGS (9)
  1. OMEPRAZOLE. [Concomitant]
     Active Substance: OMEPRAZOLE
  2. COD LIVER OIL [Concomitant]
     Active Substance: COD LIVER OIL
  3. TRAMADOL. [Concomitant]
     Active Substance: TRAMADOL
  4. BACTRIM [Concomitant]
     Active Substance: SULFAMETHOXAZOLE\TRIMETHOPRIM
  5. HYDROCHLOROTHIAZIDE. [Concomitant]
     Active Substance: HYDROCHLOROTHIAZIDE
  6. ZYRTEC [Concomitant]
     Active Substance: CETIRIZINE HYDROCHLORIDE
  7. IMBRUVICA [Suspect]
     Active Substance: IBRUTINIB
     Indication: CHRONIC LYMPHOCYTIC LEUKAEMIA
     Route: 048
     Dates: start: 20141123
  8. FOLIC ACID. [Concomitant]
     Active Substance: FOLIC ACID
  9. ACETAMINOPHEN. [Concomitant]
     Active Substance: ACETAMINOPHEN

REACTIONS (6)
  - Pyrexia [Unknown]
  - Renal failure [Unknown]
  - Asthenia [Unknown]
  - Respiratory distress [Unknown]
  - Sepsis [Fatal]
  - Fatigue [Unknown]

NARRATIVE: CASE EVENT DATE: 201512
